FAERS Safety Report 6770874-8 (Version None)
Quarter: 2010Q2

REPORT INFORMATION
  Report Type: 
  Country: None (occurrence: None)
  Receive Date: 20100614
  Receipt Date: 20100608
  Transmission Date: 20101027
  Serious: Yes (Other)
  Sender: FDA-Public Use
  Company Number: 2010SP031937

PATIENT
  Age: 23 Year
  Sex: Female
  Weight: 70 kg

DRUGS (2)
  1. PEG-INTRON [Suspect]
     Indication: HEPATITIS C
     Dosage: 100 MCG; QW; SC
     Route: 058
     Dates: start: 20091126, end: 20100512
  2. REBETOL [Suspect]
     Indication: HEPATITIS C
     Dates: start: 20091126, end: 20100512

REACTIONS (4)
  - DIZZINESS [None]
  - HEARING IMPAIRED [None]
  - NO THERAPEUTIC RESPONSE [None]
  - TINNITUS [None]
